FAERS Safety Report 8386387-6 (Version None)
Quarter: 2012Q2

REPORT INFORMATION
  Report Type: 
  Country: None (occurrence: None)
  Receive Date: 20120525
  Receipt Date: 20120518
  Transmission Date: 20120825
  Serious: Yes (Other)
  Sender: FDA-Public Use
  Company Number: US-MPIJNJ-2012-03588

PATIENT

DRUGS (2)
  1. VELCADE [Suspect]
     Indication: MULTIPLE MYELOMA
  2. CORTICOSTEROIDS [Suspect]
     Indication: MULTIPLE MYELOMA

REACTIONS (1)
  - NEOPLASM MALIGNANT [None]
